FAERS Safety Report 12485523 (Version 1)
Quarter: 2016Q2

REPORT INFORMATION
  Report Type: Spontaneous
  Country: US (occurrence: US)
  Receive Date: 20160621
  Receipt Date: 20160621
  Transmission Date: 20160815
  Serious: No
  Sender: FDA-Public Use
  Company Number: US-SA-2016SA102593

PATIENT
  Age: 7 Year
  Sex: Female
  Weight: 24.9 kg

DRUGS (6)
  1. EMLA [Concomitant]
     Active Substance: LIDOCAINE\PRILOCAINE
     Dosage: 2.5% TOP PRIOR TO INFUSION
     Dates: start: 20151105
  2. SODIUM CHLORIDE. [Concomitant]
     Active Substance: SODIUM CHLORIDE
     Indication: FLUSHING
     Route: 042
     Dates: start: 20151105
  3. SODIUM CHLORIDE. [Concomitant]
     Active Substance: SODIUM CHLORIDE
     Indication: FLUSHING
     Route: 042
     Dates: start: 20151105
  4. LIDOCAINE/PRILOCAINE [Concomitant]
     Indication: PREMEDICATION
     Route: 061
     Dates: start: 20151105
  5. CEREZYME [Suspect]
     Active Substance: IMIGLUCERASE
     Dosage: DOSE:64.15 UNIT(S)/KILOGRAM BODYWEIGHT
     Route: 041
     Dates: start: 2015
  6. EPIPEN [Concomitant]
     Active Substance: EPINEPHRINE
     Indication: ANAPHYLACTIC REACTION
     Route: 030
     Dates: start: 20151105

REACTIONS (1)
  - Back pain [Not Recovered/Not Resolved]
